FAERS Safety Report 15270226 (Version 1)
Quarter: 2018Q3

REPORT INFORMATION
  Report Type: Spontaneous
  Country: US (occurrence: US)
  Receive Date: 20180726
  Receipt Date: 20180726
  Transmission Date: 20181010
  Serious: Yes (Hospitalization)
  Sender: FDA-Public Use
  Company Number: None

PATIENT
  Age: 52 Year
  Sex: Female

DRUGS (1)
  1. BENZONATATE, 200 MG [Suspect]
     Active Substance: BENZONATATE
     Indication: COUGH
     Route: 048
     Dates: start: 20171229, end: 20180103

REACTIONS (4)
  - Vomiting [None]
  - Influenza [None]
  - Malaise [None]
  - Diarrhoea [None]

NARRATIVE: CASE EVENT DATE: 20180103
